FAERS Safety Report 13505435 (Version 1)
Quarter: 2017Q2

REPORT INFORMATION
  Report Type: Spontaneous
  Country: US (occurrence: US)
  Receive Date: 20170502
  Receipt Date: 20170502
  Transmission Date: 20170830
  Serious: Yes (Other)
  Sender: FDA-Public Use
  Company Number: PHHY2017US062840

PATIENT
  Age: 2 Year
  Sex: Male

DRUGS (2)
  1. ZOLEDRONIC ACID [Suspect]
     Active Substance: ZOLEDRONIC ACID
     Dosage: 0.025 MG/KG, UNK
     Route: 042
  2. ZOLEDRONIC ACID [Suspect]
     Active Substance: ZOLEDRONIC ACID
     Indication: BONE DENSITY DECREASED
     Dosage: 0.012 MG/KG, AT 12 MONTHS OF AGE
     Route: 042

REACTIONS (4)
  - Tibia fracture [Unknown]
  - Drug administered to patient of inappropriate age [Unknown]
  - Femur fracture [Unknown]
  - Fibula fracture [Unknown]
